FAERS Safety Report 12555687 (Version 3)
Quarter: 2016Q3

REPORT INFORMATION
  Report Type: Spontaneous
  Country: US (occurrence: US)
  Receive Date: 20160714
  Receipt Date: 20160909
  Transmission Date: 20161109
  Serious: No
  Sender: FDA-Public Use
  Company Number: US-PFIZER INC-2016291846

PATIENT
  Age: 73 Year
  Sex: Female
  Weight: 54.42 kg

DRUGS (2)
  1. CALAN SR [Suspect]
     Active Substance: VERAPAMIL HYDROCHLORIDE
     Indication: MITRAL VALVE PROLAPSE
     Dosage: 240 MG, 1X/DAY
     Route: 048
     Dates: start: 1982, end: 201605
  2. CALAN SR [Suspect]
     Active Substance: VERAPAMIL HYDROCHLORIDE
     Indication: HYPERTENSION

REACTIONS (2)
  - Heart rate decreased [Unknown]
  - Asthenia [Unknown]
